FAERS Safety Report 17292663 (Version 1)
Quarter: 2020Q1

REPORT INFORMATION
  Report Type: Spontaneous
  Country: PT (occurrence: PT)
  Receive Date: 20200121
  Receipt Date: 20200121
  Transmission Date: 20200409
  Serious: Yes (Other)
  Sender: FDA-Public Use
  Company Number: PT-BAYER-2020-000696

PATIENT
  Age: 49 Year
  Sex: Female
  Weight: 67 kg

DRUGS (5)
  1. FENOFIBRATE. [Concomitant]
     Active Substance: FENOFIBRATE
  2. ROSUVASTATIN. [Concomitant]
     Active Substance: ROSUVASTATIN
  3. CANDESARTAN. [Concomitant]
     Active Substance: CANDESARTAN
  4. ULTRAVIST [Suspect]
     Active Substance: IOPROMIDE
     Indication: COMPUTERISED TOMOGRAM CORONARY ARTERY
     Dosage: 49840 MG, ONCE
     Route: 042
     Dates: start: 20191206
  5. CONCOR [Concomitant]
     Active Substance: BISOPROLOL FUMARATE
     Route: 048

REACTIONS (3)
  - Dysphagia [Recovered/Resolved]
  - Headache [Recovered/Resolved]
  - Contrast media reaction [Recovered/Resolved]

NARRATIVE: CASE EVENT DATE: 20191206
